FAERS Safety Report 17533560 (Version 3)
Quarter: 2020Q3

REPORT INFORMATION
  Report Type: Report from Study
  Country: US (occurrence: US)
  Receive Date: 20200312
  Receipt Date: 20200728
  Transmission Date: 20201102
  Serious: Yes (Hospitalization, Other)
  Sender: FDA-Public Use
  Company Number: US-SHIRE-US202009342

PATIENT
  Sex: Female

DRUGS (1)
  1. HUMAN IMMUNOGLOBULIN; HYALURONIDASE [Suspect]
     Active Substance: HUMAN IMMUNOGLOBULIN G\HYALURONIDASE RECOMBINANT HUMAN
     Indication: PRIMARY IMMUNODEFICIENCY SYNDROME
     Route: 065

REACTIONS (8)
  - Injection site swelling [Recovered/Resolved]
  - Constipation [Unknown]
  - Pain [Unknown]
  - Injection site bruising [Unknown]
  - Scratch [Unknown]
  - Injection site pruritus [Recovered/Resolved]
  - Fall [Unknown]
  - Crohn^s disease [Unknown]
